FAERS Safety Report 7747554-5 (Version None)
Quarter: 2011Q3

REPORT INFORMATION
  Report Type: 
  Country: None (occurrence: None)
  Receive Date: 20110909
  Receipt Date: 20110826
  Transmission Date: 20111222
  Serious: Yes (Other)
  Sender: FDA-Public Use
  Company Number: AUR-APL-2011-04838

PATIENT
  Sex: Female

DRUGS (2)
  1. VALACYCLOVIR [Suspect]
     Indication: ANTIRETROVIRAL THERAPY
     Dosage: 1 DOSAGE FORMS (1 DOSAGE FORMS, 1 IN 1 D), ORAL
     Route: 048
     Dates: start: 20110601
  2. ZOLPIDEM [Suspect]
     Indication: INSOMNIA
     Dosage: 10 MG, ORAL
     Route: 048
     Dates: start: 20090101

REACTIONS (4)
  - DRUG HYPERSENSITIVITY [None]
  - RASH [None]
  - BITE [None]
  - SKIN DISCOLOURATION [None]
